FAERS Safety Report 4702664-1 (Version None)
Quarter: 2005Q2

REPORT INFORMATION
  Report Type: 
  Country: None (occurrence: None)
  Receive Date: 20050629
  Receipt Date: 20041025
  Transmission Date: 20051028
  Serious: No
  Sender: FDA-Public Use
  Company Number: US-GLAXOSMITHKLINE-A0531196A

PATIENT
  Age: 33 Year
  Sex: Male

DRUGS (1)
  1. ZYBAN [Suspect]
     Dosage: 300MG PER DAY
     Route: 048
     Dates: end: 20041022

REACTIONS (3)
  - MOUTH ULCERATION [None]
  - OEDEMA PERIPHERAL [None]
  - URTICARIA [None]
